FAERS Safety Report 9382000 (Version 1)
Quarter: 2013Q3

REPORT INFORMATION
  Report Type: Spontaneous
  Country: US (occurrence: US)
  Receive Date: 20130703
  Receipt Date: 20130703
  Transmission Date: 20140515
  Serious: Yes (Other)
  Sender: FDA-Public Use
  Company Number: US-PFIZER INC-2013194460

PATIENT
  Sex: Female
  Weight: 77 kg

DRUGS (2)
  1. LEVOXYL [Suspect]
     Indication: THYROID DISORDER
     Dosage: 100 UG, 1X/DAY
     Dates: start: 2003, end: 2013
  2. LEVOTHYROXINE SODIUM [Suspect]
     Indication: THYROID DISORDER
     Dosage: 100 UG, 1X/DAY
     Dates: start: 201304

REACTIONS (5)
  - Gastric ulcer [Unknown]
  - Shock [Unknown]
  - Nausea [Unknown]
  - Syncope [Unknown]
  - Abdominal discomfort [Unknown]
